FAERS Safety Report 17129026 (Version 2)
Quarter: 2019Q4

REPORT INFORMATION
  Report Type: Spontaneous
  Country: JP (occurrence: JP)
  Receive Date: 20191209
  Receipt Date: 20191210
  Transmission Date: 20200122
  Serious: Yes (Other)
  Sender: FDA-Public Use
  Company Number: JP-PFIZER INC-2019525998

PATIENT
  Age: 53 Year
  Sex: Male

DRUGS (5)
  1. IMMUNOGLOBULINS [Concomitant]
     Indication: PEMPHIGUS
     Dosage: UNK, CYCLIC, (SEVEN TIMES)
     Route: 042
  2. METHYLPREDNISOLONE SODIUM SUCCINATE. [Suspect]
     Active Substance: METHYLPREDNISOLONE SODIUM SUCCINATE
     Indication: PEMPHIGUS
     Dosage: 1000 MG, DAILY (PULSE THERAPY FOR 3 CONSECUTIVE DAYS TWICE)
  3. PREDNISOLONE. [Suspect]
     Active Substance: PREDNISOLONE
     Indication: PEMPHIGUS
     Dosage: 25 MG, 1X/DAY
     Route: 048
  4. PREDNISOLONE. [Suspect]
     Active Substance: PREDNISOLONE
     Dosage: 60 MG, 1X/DAY (UP TO 60 MG/DAY)
     Route: 048
  5. CICLOSPORIN [Concomitant]
     Active Substance: CYCLOSPORINE
     Indication: PEMPHIGUS
     Dosage: 200 MG, 1X/DAY
     Route: 048

REACTIONS (1)
  - Steroid diabetes [Unknown]
